FAERS Safety Report 6233750-5 (Version None)
Quarter: 2009Q2

REPORT INFORMATION
  Report Type: 
  Country: None (occurrence: None)
  Receive Date: 20090618
  Receipt Date: 20070410
  Transmission Date: 20091009
  Serious: Yes (Hospitalization, Other)
  Sender: FDA-Public Use
  Company Number: US-ASTRAZENECA-2006UW11038

PATIENT
  Age: 51 Year
  Sex: Female
  Weight: 136.1 kg

DRUGS (28)
  1. SEROQUEL [Suspect]
     Indication: ANXIETY
     Dosage: STRENGTH 25-625 MG
     Route: 048
     Dates: start: 20011227
  2. SEROQUEL [Suspect]
     Indication: DEPRESSION
     Dosage: STRENGTH 25-625 MG
     Route: 048
     Dates: start: 20011227
  3. SEROQUEL [Suspect]
     Indication: BIPOLAR DISORDER
     Dosage: STRENGTH 25-625 MG
     Route: 048
     Dates: start: 20011227
  4. SEROQUEL [Suspect]
     Dosage: 100-600 MG
     Route: 048
     Dates: start: 20020101, end: 20070101
  5. SEROQUEL [Suspect]
     Dosage: 100-600 MG
     Route: 048
     Dates: start: 20020101, end: 20070101
  6. SEROQUEL [Suspect]
     Dosage: 100-600 MG
     Route: 048
     Dates: start: 20020101, end: 20070101
  7. ABILIFY [Concomitant]
     Dates: start: 20060101
  8. GEODON [Concomitant]
  9. HALDOL [Concomitant]
     Dosage: 2-3 MG
     Dates: start: 20000101, end: 20010101
  10. RISPERDAL [Concomitant]
     Dates: start: 19960101, end: 20060101
  11. STELAZINE [Concomitant]
     Dosage: 3-5 MG
     Dates: start: 19800101
  12. THORAZINE [Concomitant]
     Dates: start: 19680101, end: 19880101
  13. TRILAFON [Concomitant]
     Dates: start: 19680101, end: 19710101
  14. XANAX [Concomitant]
     Dosage: 3-5 MG
  15. KLONOPIN [Concomitant]
     Dates: start: 19910101
  16. ELAVIL [Concomitant]
     Dates: start: 19820101, end: 19910101
  17. TRAZODONE HCL [Concomitant]
     Dosage: 25-250 MG
  18. PREDNISONE [Concomitant]
     Dosage: TAPERING DOSE (20 MG FOR 3 DAYS, 10 MG FOR NEXT 5 DAYS, 10 MG FOR NEXT 8 DAYS)
     Dates: start: 20011122
  19. CELECOXIB [Concomitant]
     Dates: start: 20060613
  20. CLONAZEPAM [Concomitant]
     Dosage: STRENGTH 0.5-1 MG, P.O.T.I.D.
     Route: 048
     Dates: start: 20020420
  21. DULOXETINE HYDROCHLORIDE [Concomitant]
     Route: 048
     Dates: start: 20060814
  22. ACETAMINOPHEN [Concomitant]
     Dosage: STRENGTH 325-500 MG
     Dates: start: 20020420
  23. METOPROLOL SUCCINATE [Concomitant]
     Dosage: STRENGTH 50-200 MG
     Route: 048
     Dates: start: 20020420
  24. RISPERIDONE [Concomitant]
     Route: 048
     Dates: start: 20020420
  25. SYNTHROID [Concomitant]
     Dosage: STRENGTH 25 MCG-0.125 MG
     Route: 048
     Dates: start: 20020420
  26. STRATTERA [Concomitant]
     Route: 048
     Dates: start: 20060304
  27. GABAPENTIN [Concomitant]
     Dosage: STRENGTH 300-400 MG
     Dates: start: 20020420
  28. LAMOTRIGINE [Concomitant]
     Dosage: STRENGTH 25-200 MG
     Route: 048
     Dates: start: 20050524

REACTIONS (14)
  - BRONCHITIS [None]
  - BRONCHOSPASM [None]
  - CANDIDIASIS [None]
  - CHOLECYSTECTOMY [None]
  - CHRONIC OBSTRUCTIVE PULMONARY DISEASE [None]
  - DIABETES MELLITUS [None]
  - EATING DISORDER [None]
  - KNEE ARTHROPLASTY [None]
  - LUMBAR RADICULOPATHY [None]
  - MALAISE [None]
  - RADICULOTOMY [None]
  - STAPHYLOCOCCAL INFECTION [None]
  - TREATMENT FAILURE [None]
  - TYPE 2 DIABETES MELLITUS [None]
